FAERS Safety Report 9310607 (Version 1)
Quarter: 2013Q2

REPORT INFORMATION
  Report Type: Other
  Country: None (occurrence: CA)
  Receive Date: 20130527
  Receipt Date: 20130527
  Transmission Date: 20140414
  Serious: No
  Sender: FDA-Public Use
  Company Number: CA-GALEN LIMITED-AE-2013/0533

PATIENT
  Age: 42 Year
  Sex: Male

DRUGS (2)
  1. DAUNORUBICIN [Suspect]
     Indication: ACUTE MYELOID LEUKAEMIA
  2. ARABINOSIDE [Concomitant]
     Indication: ACUTE MYELOID LEUKAEMIA

REACTIONS (1)
  - Focal segmental glomerulosclerosis [Unknown]
